FAERS Safety Report 23375028 (Version 5)
Quarter: 2024Q1

REPORT INFORMATION
  Report Type: Spontaneous
  Country: US (occurrence: US)
  Receive Date: 20240106
  Receipt Date: 20240210
  Transmission Date: 20240410
  Serious: Yes (Hospitalization, Other)
  Sender: FDA-Public Use
  Company Number: US-UNITED THERAPEUTICS-UNT-2023-034976

PATIENT
  Age: 37 Year
  Sex: Female

DRUGS (8)
  1. REMODULIN [Suspect]
     Active Substance: TREPROSTINIL
     Indication: Pulmonary arterial hypertension
     Dosage: 0.10078 ?G/KG (SELF-FILL CASSETTE WITH 2.4 ML, AT PUMP RATE OF 26 UL/HOUR; EVERY 70 HOURS), CONTINUI
     Route: 058
  2. REMODULIN [Suspect]
     Active Substance: TREPROSTINIL
     Dosage: 0.10465 ?G/KG  CONTINUING
     Route: 058
     Dates: start: 202401
  3. REMODULIN [Suspect]
     Active Substance: TREPROSTINIL
     Dosage: UNK, CONTINUING
     Route: 058
     Dates: start: 2012
  4. REMODULIN [Suspect]
     Active Substance: TREPROSTINIL
     Indication: Pulmonary arterial hypertension
     Dosage: 0.101 ?G/KG, CONTINUING
     Route: 041
     Dates: start: 202312
  5. REMODULIN [Suspect]
     Active Substance: TREPROSTINIL
     Dosage: 0.080 ?G/KG, CONTINUING
     Route: 041
     Dates: start: 202312
  6. REMODULIN [Suspect]
     Active Substance: TREPROSTINIL
     Dosage: UNK, CONTINUING
     Route: 041
     Dates: end: 202401
  7. OPSUMIT [Concomitant]
     Active Substance: MACITENTAN
     Indication: Product used for unknown indication
     Dosage: UNK
     Route: 065
  8. ADEMPAS [Concomitant]
     Active Substance: RIOCIGUAT
     Indication: Product used for unknown indication
     Dosage: UNK
     Route: 065

REACTIONS (33)
  - Hypoxia [Unknown]
  - Fatigue [Unknown]
  - Dyspnoea [Unknown]
  - Device failure [Unknown]
  - Incorrect dose administered by device [Unknown]
  - Dizziness [Unknown]
  - Nausea [Unknown]
  - Vomiting [Unknown]
  - Headache [Unknown]
  - Pain [Unknown]
  - Mental impairment [Unknown]
  - Gastrooesophageal reflux disease [Not Recovered/Not Resolved]
  - Device physical property issue [Unknown]
  - Device malfunction [Unknown]
  - Device alarm issue [Unknown]
  - Infusion site discharge [Recovering/Resolving]
  - Pallor [Recovering/Resolving]
  - Paraesthesia [Recovering/Resolving]
  - Device failure [Unknown]
  - Patient dissatisfaction with device [Unknown]
  - Impaired quality of life [Unknown]
  - Dyspnoea exertional [Unknown]
  - Oxygen saturation decreased [Unknown]
  - Cardiac disorder [Unknown]
  - Infusion site pain [Unknown]
  - Anxiety [Unknown]
  - Fluid retention [Unknown]
  - Device use issue [Unknown]
  - Device failure [Unknown]
  - Device power source issue [Unknown]
  - Device issue [Unknown]
  - Device failure [Unknown]
  - Drug intolerance [Unknown]

NARRATIVE: CASE EVENT DATE: 20231101
